FAERS Safety Report 24141032 (Version 3)
Quarter: 2025Q1

REPORT INFORMATION
  Report Type: Spontaneous
  Country: IT (occurrence: IT)
  Receive Date: 20240726
  Receipt Date: 20250212
  Transmission Date: 20250408
  Serious: Yes (Other)
  Sender: PFIZER
  Company Number: IT-ROCHE-10000016800

PATIENT
  Age: 69 Year
  Sex: Female
  Weight: 65 kg

DRUGS (28)
  1. DOXORUBICIN HYDROCHLORIDE [Suspect]
     Active Substance: DOXORUBICIN HYDROCHLORIDE
     Indication: Diffuse large B-cell lymphoma
     Dosage: 85 MG, EVERY 3 WEEKS
     Route: 042
     Dates: start: 20240423
  2. DOXORUBICIN HYDROCHLORIDE [Suspect]
     Active Substance: DOXORUBICIN HYDROCHLORIDE
     Dosage: 83.5 MG EVERY 3 WEEKS
     Route: 042
     Dates: start: 20240604, end: 20240604
  3. RITUXIMAB [Suspect]
     Active Substance: RITUXIMAB
     Indication: Diffuse large B-cell lymphoma
     Dosage: 637.38 MG, EVERY 3 WEEKS
     Route: 042
     Dates: start: 20240423
  4. RITUXIMAB [Suspect]
     Active Substance: RITUXIMAB
     Dosage: 647.26 MG, EVERY 3 WEEKS
     Route: 042
     Dates: start: 20240604, end: 20240604
  5. POLATUZUMAB VEDOTIN [Suspect]
     Active Substance: POLATUZUMAB VEDOTIN
     Indication: Diffuse large B-cell lymphoma
     Dosage: 117 MG, EVERY 3 WEEKS
     Route: 042
     Dates: start: 20240423
  6. POLATUZUMAB VEDOTIN [Suspect]
     Active Substance: POLATUZUMAB VEDOTIN
     Dosage: 117 MG, EVERY 3 WEEKS
     Route: 042
     Dates: start: 20240604, end: 20240604
  7. CYCLOPHOSPHAMIDE [Suspect]
     Active Substance: CYCLOPHOSPHAMIDE
     Indication: Diffuse large B-cell lymphoma
     Dosage: 1275 MG, EVERY 3 WEEKS
     Route: 042
     Dates: start: 20240423
  8. CYCLOPHOSPHAMIDE [Suspect]
     Active Substance: CYCLOPHOSPHAMIDE
     Dosage: 1252.5 MG, EVERY 3 WEEKS
     Route: 042
     Dates: start: 20240604, end: 20240604
  9. PREDNISONE [Suspect]
     Active Substance: PREDNISONE
     Indication: Diffuse large B-cell lymphoma
     Dosage: 80 MG, EVERY 3 WEEKS
     Route: 048
     Dates: start: 20240423
  10. PREDNISONE [Suspect]
     Active Substance: PREDNISONE
     Dosage: 12.25 MG, EVERY 3 WEEKS
     Route: 048
     Dates: start: 20240611, end: 20240611
  11. ALLOPURINOL [Concomitant]
     Active Substance: ALLOPURINOL
     Indication: Prophylaxis
     Dosage: 300 MG, 1X/DAY
     Route: 048
     Dates: start: 20240418, end: 20240625
  12. BACTRIM [Concomitant]
     Active Substance: SULFAMETHOXAZOLE\TRIMETHOPRIM
     Indication: Prophylaxis
     Route: 048
     Dates: start: 20240424
  13. PANTOPRAZOLE SODIUM [Concomitant]
     Active Substance: PANTOPRAZOLE SODIUM
     Indication: Prophylaxis
     Dosage: 20 MG, 1X/DAY
     Route: 048
     Dates: start: 20240419
  14. MAGALDRATE [Concomitant]
     Active Substance: MAGALDRATE
     Indication: Prophylaxis
     Route: 048
     Dates: start: 20240603
  15. CETIRIZINE [Concomitant]
     Active Substance: CETIRIZINE HYDROCHLORIDE
     Dosage: 10 MG, 1X/DAY
     Route: 048
     Dates: start: 20240604, end: 20240604
  16. ACETAMINOPHEN [Concomitant]
     Active Substance: ACETAMINOPHEN
     Dosage: 1000 MG, 1X/DAY
     Route: 048
     Dates: start: 20240604, end: 20240604
  17. POTASSIUM CHLORIDE [Concomitant]
     Active Substance: POTASSIUM CHLORIDE
     Indication: Hypokalaemia
     Dosage: 1 DF, 2X/DAY
     Route: 048
     Dates: start: 20240424, end: 20240625
  18. FILGRASTIM [Concomitant]
     Active Substance: FILGRASTIM
     Indication: Neutropenia
     Dosage: DRUG DOSE FIRST ADMINISTERED IS 1 AMPULE
     Route: 058
     Dates: start: 20240607, end: 20240613
  19. FILGRASTIM [Concomitant]
     Active Substance: FILGRASTIM
     Indication: Prophylaxis
     Dosage: DRUG DOSE FIRST ADMINISTERED IS 1 AMPULE
     Route: 058
     Dates: start: 20240625, end: 20240627
  20. FILGRASTIM [Concomitant]
     Active Substance: FILGRASTIM
     Dosage: DRUG DOSE FIRST ADMINISTERED IS 1 AMPULE
     Route: 058
     Dates: start: 20240701, end: 20240710
  21. ACYCLOVIR [Concomitant]
     Active Substance: ACYCLOVIR
     Indication: Prophylaxis
     Dosage: 400 MG, 1X/DAY
     Route: 048
     Dates: start: 20240424
  22. ACETYLCYSTEINE [Concomitant]
     Active Substance: ACETYLCYSTEINE
     Indication: Prophylaxis
     Route: 048
     Dates: start: 20240625, end: 20240805
  23. CIPROFLOXACIN\FLUOCINOLONE ACETONIDE [Concomitant]
     Active Substance: CIPROFLOXACIN\FLUOCINOLONE ACETONIDE
     Indication: Ear pain
     Route: 061
     Dates: start: 202306
  24. ONDANSETRON [Concomitant]
     Active Substance: ONDANSETRON
     Dosage: 8 MG, 1X/DAY
     Route: 042
     Dates: start: 20240604, end: 20240604
  25. CLOTRIMAZOLE [Concomitant]
     Active Substance: CLOTRIMAZOLE
     Dosage: DRUG DOSE FIRST ADMINISTERED IS 2 PUFF
     Route: 001
     Dates: start: 20240522, end: 20240606
  26. CEFTRIAXONE [Concomitant]
     Active Substance: CEFTRIAXONE
     Indication: Prophylaxis
     Dosage: 2 G, 1X/DAY
     Route: 030
     Dates: start: 20240701, end: 20240705
  27. CEFTRIAXONE [Concomitant]
     Active Substance: CEFTRIAXONE
     Indication: Febrile neutropenia
  28. DIHYDROCODEINE BITARTRATE [Concomitant]
     Active Substance: DIHYDROCODEINE BITARTRATE
     Route: 048
     Dates: start: 20240603

REACTIONS (3)
  - Febrile neutropenia [Recovered/Resolved]
  - Off label use [Unknown]
  - Product use issue [Unknown]

NARRATIVE: CASE EVENT DATE: 20240604
